FAERS Safety Report 9732145 (Version 1)
Quarter: 2013Q4

REPORT INFORMATION
  Report Type: Spontaneous
  Country: US (occurrence: None)
  Receive Date: 20131204
  Receipt Date: 20131204
  Transmission Date: 20140711
  Serious: Yes (Death)
  Sender: FDA-Public Use
  Company Number: None

PATIENT
  Age: 75 Year
  Sex: Female
  Weight: 56 kg

DRUGS (2)
  1. CLOPIDOGREL 75MG [Suspect]
  2. ASA [Suspect]
     Route: 048

REACTIONS (6)
  - Haematemesis [None]
  - Melaena [None]
  - Haemoglobin decreased [None]
  - Blood pressure decreased [None]
  - Gastrointestinal haemorrhage [None]
  - No therapeutic response [None]
